FAERS Safety Report 5446641-4 (Version None)
Quarter: 2007Q3

REPORT INFORMATION
  Report Type: 
  Country: None (occurrence: None)
  Receive Date: 20070907
  Receipt Date: 20070827
  Transmission Date: 20080115
  Serious: Yes (Other)
  Sender: FDA-Public Use
  Company Number: BR-PFIZER INC-2007067452

PATIENT
  Sex: Female
  Weight: 63 kg

DRUGS (2)
  1. DEPO-PROVERA SUSPENSION/INJ [Suspect]
     Indication: CONTRACEPTION
     Dates: start: 20070202, end: 20070202
  2. DEPO-PROVERA SUSPENSION/INJ [Suspect]
     Dates: start: 20070802, end: 20070802

REACTIONS (2)
  - CORNEAL EXFOLIATION [None]
  - INCORRECT DOSE ADMINISTERED [None]
